FAERS Safety Report 9775744 (Version 1)
Quarter: 2013Q4

REPORT INFORMATION
  Report Type: Spontaneous
  Country: GB (occurrence: GB)
  Receive Date: 20131220
  Receipt Date: 20131220
  Transmission Date: 20140711
  Serious: Yes (Life-Threatening)
  Sender: FDA-Public Use
  Company Number: GB-BRISTOL-MYERS SQUIBB COMPANY-19899731

PATIENT
  Age: 73 Year
  Sex: Female

DRUGS (9)
  1. METFORMIN HCL [Suspect]
     Indication: DIABETES MELLITUS
     Dosage: LONG TERM, UNSURE HOW LONG IT HAS BEEN PRESCRIBED
     Route: 048
     Dates: end: 20131125
  2. IRBESARTAN [Suspect]
     Indication: HYPERTENSION
     Dosage: 150MG ONCE DAILY, BEEN ON LONG TERM, UNSURE HOW LONG EXACTLY
     Route: 048
     Dates: end: 20131125
  3. CICLOSPORIN [Suspect]
     Indication: AUTOIMMUNE HAEMOLYTIC ANAEMIA
     Dosage: 50MG BID FOR 9 DAYS, THEN 25MG BID FOR 1 DAY THEN STOPPED?16NOV-25NOV: 50MG?26NOV-27NOV: 25MG
     Dates: start: 20131116, end: 20131127
  4. ISOSORBIDE MONONITRATE [Concomitant]
  5. CARBOCISTEINE [Concomitant]
  6. EFUDEX [Concomitant]
  7. BISOPROLOL [Concomitant]
  8. MABTHERA [Concomitant]
  9. FOLIC ACID [Concomitant]

REACTIONS (1)
  - Renal failure [Unknown]
